FAERS Safety Report 6083052-5 (Version None)
Quarter: 2009Q1

REPORT INFORMATION
  Report Type: 
  Country: None (occurrence: None)
  Receive Date: 20090218
  Receipt Date: 20090213
  Transmission Date: 20090719
  Serious: Yes (Death)
  Sender: FDA-Public Use
  Company Number: ZA-GILEAD-2009-0020339

PATIENT
  Age: 48 Year
  Sex: Male
  Weight: 49.6 kg

DRUGS (7)
  1. TRUVADA [Suspect]
     Indication: HIV INFECTION
     Route: 048
     Dates: start: 20081202, end: 20081227
  2. EFAVIRENZ [Suspect]
     Indication: HIV INFECTION
     Route: 048
     Dates: start: 20081202, end: 20081227
  3. ATARAX [Concomitant]
     Route: 048
     Dates: start: 20081007
  4. PARACOD [Concomitant]
     Dosage: 2 TABLETS
     Route: 048
  5. DOXYCYCLINE [Concomitant]
     Route: 048
  6. MULTI-VITAMIN [Concomitant]
     Route: 048
  7. RIFAFOUR [Concomitant]
     Indication: PULMONARY TUBERCULOSIS
     Dates: start: 20081119

REACTIONS (1)
  - PULMONARY TUBERCULOSIS [None]
